FAERS Safety Report 6795977-3 (Version None)
Quarter: 2010Q2

REPORT INFORMATION
  Report Type: 
  Country: None (occurrence: None)
  Receive Date: 20100625
  Receipt Date: 20100624
  Transmission Date: 20101027
  Serious: Yes (Other)
  Sender: FDA-Public Use
  Company Number: D0068085A

PATIENT
  Sex: Female

DRUGS (1)
  1. MALARONE [Suspect]
     Route: 048

REACTIONS (6)
  - ASTHENIA [None]
  - DYSPNOEA [None]
  - HEADACHE [None]
  - PNEUMONIA [None]
  - RASH [None]
  - SWELLING FACE [None]
